FAERS Safety Report 9683105 (Version 1)
Quarter: 2013Q4

REPORT INFORMATION
  Report Type: Spontaneous
  Country: US (occurrence: None)
  Receive Date: 20131111
  Receipt Date: 20131111
  Transmission Date: 20140711
  Serious: Yes (Hospitalization)
  Sender: FDA-Public Use
  Company Number: None

PATIENT
  Age: 67 Year
  Sex: Male
  Weight: 137 kg

DRUGS (1)
  1. ENOXAPARIN [Suspect]
     Indication: PULMONARY EMBOLISM
     Route: 058
     Dates: start: 20130821, end: 20130916

REACTIONS (7)
  - Retroperitoneal haemorrhage [None]
  - Mass [None]
  - Dementia [None]
  - Cognitive disorder [None]
  - Contusion [None]
  - Retroperitoneal haematoma [None]
  - Hypotension [None]
